FAERS Safety Report 10571567 (Version 5)
Quarter: 2015Q1

REPORT INFORMATION
  Report Type: Spontaneous
  Country: JP (occurrence: JP)
  Receive Date: 20141107
  Receipt Date: 20150120
  Transmission Date: 20150720
  Serious: No
  Sender: FDA-Public Use
  Company Number: JP-BAYER-2014-154098

PATIENT
  Age: 67 Year
  Sex: Male
  Weight: 53 kg

DRUGS (11)
  1. BAYASPIRIN [Suspect]
     Active Substance: ASPIRIN
     Indication: CARDIAC FAILURE CONGESTIVE
     Dosage: 100 MG, QD
     Route: 048
     Dates: start: 20140925, end: 20141001
  2. NEXIUM [Suspect]
     Active Substance: ESOMEPRAZOLE MAGNESIUM
     Indication: PROPHYLAXIS AGAINST GASTROINTESTINAL ULCER
     Dosage: 20 MG, QD
     Route: 048
     Dates: start: 20140926, end: 20141006
  3. LIPITOR [Suspect]
     Active Substance: ATORVASTATIN CALCIUM
     Indication: CARDIAC FAILURE CONGESTIVE
     Dosage: 10 MG, QD
     Route: 048
     Dates: start: 20140925, end: 20140927
  4. NICORANDIL [Concomitant]
     Active Substance: NICORANDIL
     Indication: CARDIAC FAILURE CONGESTIVE
     Dosage: DAILY DOSE 15 MG
     Route: 048
     Dates: start: 20140925, end: 20141002
  5. DIART [Concomitant]
     Active Substance: AZOSEMIDE
     Indication: CARDIAC FAILURE CONGESTIVE
     Dosage: DAILY DOSE 60 MG
     Route: 048
     Dates: start: 20141002, end: 20141003
  6. FUROSEMIDE. [Concomitant]
     Active Substance: FUROSEMIDE
     Indication: CARDIAC FAILURE CONGESTIVE
     Dosage: 40 MG, QD
     Route: 042
     Dates: start: 20140925, end: 20141002
  7. SIGMART [Concomitant]
     Active Substance: NICORANDIL
     Dosage: UNK
     Route: 048
  8. BEZATOL [Concomitant]
     Active Substance: BEZAFIBRATE
     Dosage: 400 MG, QD
     Route: 048
     Dates: end: 20140918
  9. MEVALOTIN [Suspect]
     Active Substance: PRAVASTATIN SODIUM
     Indication: CARDIAC FAILURE CONGESTIVE
     Dosage: 10 MG, QD
     Route: 048
     Dates: start: 20140928, end: 20141009
  10. ALLOPURINOL. [Concomitant]
     Active Substance: ALLOPURINOL
     Dosage: 100 MG, QD
     Route: 048
     Dates: end: 20140918
  11. DIART [Concomitant]
     Active Substance: AZOSEMIDE
     Indication: CARDIAC FAILURE CONGESTIVE
     Dosage: 30 MG, UNK
     Route: 048
     Dates: start: 20141004

REACTIONS (1)
  - Eosinophilia [Recovered/Resolved]

NARRATIVE: CASE EVENT DATE: 20140928
